FAERS Safety Report 4644678-6 (Version None)
Quarter: 2005Q2

REPORT INFORMATION
  Report Type: 
  Country: None (occurrence: None)
  Receive Date: 20050422
  Receipt Date: 20050411
  Transmission Date: 20051028
  Serious: Yes (Hospitalization)
  Sender: FDA-Public Use
  Company Number: US015062

PATIENT
  Age: 28 Year
  Sex: Male
  Weight: 86.1834 kg

DRUGS (5)
  1. GABITRIL [Suspect]
     Indication: AFFECTIVE DISORDER
     Dosage: 4 MG BID ORAL
     Route: 048
     Dates: start: 20050101, end: 20050408
  2. LITHIUM CARBONATE [Concomitant]
  3. REMERON [Concomitant]
  4. ABILIFY [Concomitant]
  5. RISPERDAL [Concomitant]

REACTIONS (6)
  - COMMUNICATION DISORDER [None]
  - CONVULSION [None]
  - FALL [None]
  - HEADACHE [None]
  - RESPIRATORY ARREST [None]
  - VISUAL DISTURBANCE [None]
